FAERS Safety Report 7671785-6 (Version None)
Quarter: 2011Q3

REPORT INFORMATION
  Report Type: 
  Country: None (occurrence: None)
  Receive Date: 20110809
  Receipt Date: 20110801
  Transmission Date: 20111222
  Serious: Yes (Other)
  Sender: FDA-Public Use
  Company Number: US-BAYER-2011-047560

PATIENT
  Age: 54 Year
  Sex: Female

DRUGS (1)
  1. MIRENA [Suspect]
     Indication: MENORRHAGIA
     Dosage: 20 ?G/D, CONT
     Route: 015
     Dates: start: 20080422, end: 20110530

REACTIONS (4)
  - DEVICE EXPULSION [None]
  - HAEMOGLOBIN DECREASED [None]
  - HYSTERECTOMY [None]
  - HAEMATOCRIT DECREASED [None]
